FAERS Safety Report 9680328 (Version 1)
Quarter: 2013Q4

REPORT INFORMATION
  Report Type: Spontaneous
  Country: NZ (occurrence: NZ)
  Receive Date: 20131111
  Receipt Date: 20131111
  Transmission Date: 20140711
  Serious: Yes (Other)
  Sender: FDA-Public Use
  Company Number: NZ-BRISTOL-MYERS SQUIBB COMPANY-19411743

PATIENT
  Sex: Female

DRUGS (1)
  1. ETOPOPHOS [Suspect]

REACTIONS (3)
  - Dyspnoea [Unknown]
  - Chest pain [Unknown]
  - Skin discolouration [Unknown]
